FAERS Safety Report 24221574 (Version 1)
Quarter: 2024Q3

REPORT INFORMATION
  Report Type: Report from Study
  Country: DE (occurrence: DE)
  Receive Date: 20240819
  Receipt Date: 20240819
  Transmission Date: 20241017
  Serious: Yes (Other)
  Sender: EMD SERONO INC
  Company Number: DE-Merck Healthcare KGaA-2024043430

PATIENT
  Sex: Female

DRUGS (1)
  1. REBIF [Suspect]
     Active Substance: INTERFERON BETA-1A
     Indication: Product used for unknown indication
     Dosage: THERAPY START DATE: 14 YEARS AGO
     Route: 058

REACTIONS (2)
  - Impaired healing [Not Recovered/Not Resolved]
  - Injection site abscess [Not Recovered/Not Resolved]
